FAERS Safety Report 20041070 (Version 1)
Quarter: 2021Q4

REPORT INFORMATION
  Report Type: Report from Study
  Country: CA (occurrence: CA)
  Receive Date: 20211107
  Receipt Date: 20211107
  Transmission Date: 20220303
  Serious: Yes (Other)
  Sender: FDA-Public Use
  Company Number: CA-TEVA-2021-CA-1974266

PATIENT
  Age: 47 Year
  Sex: Female

DRUGS (3)
  1. EVEROLIMUS [Suspect]
     Active Substance: EVEROLIMUS
     Indication: Neuroendocrine tumour
     Dosage: EVERY OTHER DAY
     Route: 048
     Dates: start: 20210629, end: 20211026
  2. perindopril arginine/amlodipine [Concomitant]
  3. Creon minimicrospheres 10 [Concomitant]

REACTIONS (3)
  - Disease progression [Unknown]
  - Pelvic mass [Unknown]
  - Hepatic lesion [Unknown]

NARRATIVE: CASE EVENT DATE: 20210101
